FAERS Safety Report 4790110-1 (Version None)
Quarter: 2005Q3

REPORT INFORMATION
  Report Type: 
  Country: None (occurrence: None)
  Receive Date: 20050914
  Receipt Date: 20041216
  Transmission Date: 20060218
  Serious: Yes (Disabling)
  Sender: FDA-Public Use
  Company Number: 163-20785-04120471

PATIENT
  Age: 79 Year
  Sex: Male

DRUGS (1)
  1. THALOMID [Suspect]
     Indication: POLYCYTHAEMIA VERA
     Dosage: 50 MG, DAILY, ORAL
     Route: 048
     Dates: start: 20040802, end: 20041005

REACTIONS (4)
  - ASTHENIA [None]
  - CONSTIPATION [None]
  - FATIGUE [None]
  - SOMNOLENCE [None]
